FAERS Safety Report 9386788 (Version 4)
Quarter: 2013Q3

REPORT INFORMATION
  Report Type: Spontaneous
  Country: US (occurrence: US)
  Receive Date: 20130708
  Receipt Date: 20130909
  Transmission Date: 20140515
  Serious: No
  Sender: FDA-Public Use
  Company Number: US-PFIZER INC-2013200249

PATIENT
  Age: 49 Year
  Sex: Male
  Weight: 136 kg

DRUGS (11)
  1. NEURONTIN [Suspect]
     Indication: DIABETIC NEUROPATHY
     Dosage: 100 MG, 2X/DAY
     Route: 048
     Dates: start: 201204
  2. NEURONTIN [Suspect]
     Dosage: UNK, DAILY
  3. BYSTOLIC [Concomitant]
     Indication: HYPERTENSION
     Dosage: 25 MG, 1X/DAY
  4. BYSTOLIC [Concomitant]
     Dosage: 5 MG, 1X/DAY (1 PER DAY)
  5. JANUVIA [Concomitant]
     Dosage: 100 MG, 1X/DAY (1 PER DAY)
  6. LASIX [Concomitant]
     Dosage: 40 MG, 1X/DAY (1 PER DAY)
  7. KCL [Concomitant]
     Dosage: 10 MEQ, 1X/DAY (1 PER DAY)
  8. DIOVAN [Concomitant]
     Dosage: 160 MG, 1X/DAY (1 PER DAY)
  9. VENTOLIN [Concomitant]
     Dosage: UNK, AS NEEDED (PRN)
  10. VISTARIL [Concomitant]
     Dosage: 25 MG, AS NEEDED (PRN)
  11. FLOVENT [Concomitant]
     Dosage: UNK, 2X/DAY (110 MCG 2 PUFFS TWICE DAILY)

REACTIONS (2)
  - Oropharyngeal pain [Recovering/Resolving]
  - Malaise [Unknown]
